FAERS Safety Report 6837043-4 (Version None)
Quarter: 2010Q3

REPORT INFORMATION
  Report Type: 
  Country: None (occurrence: None)
  Receive Date: 20100713
  Receipt Date: 20070427
  Transmission Date: 20110219
  Serious: No
  Sender: FDA-Public Use
  Company Number: US-PFIZER INC-2007035296

PATIENT
  Sex: Male

DRUGS (3)
  1. CHANTIX [Suspect]
     Indication: SMOKING CESSATION THERAPY
     Dates: start: 20070301
  2. ALLERGY MEDICATION [Concomitant]
     Indication: HYPERSENSITIVITY
  3. TYLENOL [Concomitant]
     Indication: ARTHRITIS

REACTIONS (3)
  - CONSTIPATION [None]
  - GASTRIC DISORDER [None]
  - WEIGHT INCREASED [None]
